FAERS Safety Report 13837513 (Version 2)
Quarter: 2017Q3

REPORT INFORMATION
  Report Type: Report from Study
  Country: BR (occurrence: BR)
  Receive Date: 20170804
  Receipt Date: 20170923
  Transmission Date: 20171127
  Serious: Yes (Other)
  Sender: FDA-Public Use
  Company Number: BR-EMD SERONO-E2B_80073476

PATIENT
  Age: 66 Year
  Sex: Female

DRUGS (7)
  1. CAPTOPRIL. [Concomitant]
     Active Substance: CAPTOPRIL
  2. METFORMIN [Concomitant]
     Active Substance: METFORMIN HYDROCHLORIDE
     Indication: GLUCOSE TOLERANCE IMPAIRED
  3. DIPYRONE MONOHYDRATE [Suspect]
     Active Substance: DIPYRONE
     Indication: PAIN
  4. CAPTOPRIL. [Concomitant]
     Active Substance: CAPTOPRIL
     Indication: HYPERTENSION
     Dosage: HALF A TABLET OF IN MORNING, AND HALF TABLET IN EVENING
  5. REBIF [Suspect]
     Active Substance: INTERFERON BETA-1A
     Indication: MULTIPLE SCLEROSIS
     Route: 058
     Dates: start: 20170517
  6. GLIFAGE [Concomitant]
     Active Substance: METFORMIN HYDROCHLORIDE
     Indication: PRODUCT USED FOR UNKNOWN INDICATION
  7. IBUPROFEN. [Concomitant]
     Active Substance: IBUPROFEN
     Indication: PREMEDICATION

REACTIONS (14)
  - Tremor [Recovered/Resolved]
  - Gait disturbance [Unknown]
  - Heart rate abnormal [Recovered/Resolved]
  - Back pain [Recovered/Resolved]
  - Pyrexia [Unknown]
  - Fatigue [Unknown]
  - Headache [Recovered/Resolved]
  - Dizziness [Not Recovered/Not Resolved]
  - Nausea [Unknown]
  - Hypotension [Recovered/Resolved]
  - Blood pressure increased [Recovered/Resolved]
  - Chest pain [Recovered/Resolved]
  - Malaise [Recovering/Resolving]
  - Heart rate increased [Unknown]

NARRATIVE: CASE EVENT DATE: 20170613
